FAERS Safety Report 19561569 (Version 3)
Quarter: 2021Q3

REPORT INFORMATION
  Report Type: Report from Study
  Country: US (occurrence: US)
  Receive Date: 20210716
  Receipt Date: 20210721
  Transmission Date: 20211014
  Serious: No
  Sender: FDA-Public Use
  Company Number: US-AGIOS-2107US02958

PATIENT

DRUGS (17)
  1. GARLIC                             /01570501/ [Concomitant]
     Active Substance: GARLIC
  2. FOLIC ACID. [Concomitant]
     Active Substance: FOLIC ACID
  3. AMBIEN [Concomitant]
     Active Substance: ZOLPIDEM TARTRATE
  4. TIBSOVO [Suspect]
     Active Substance: IVOSIDENIB
     Indication: GLIOBLASTOMA
     Dosage: 250 MILLIGRAM, 2 TABLETS (500 MG), QD
     Route: 048
     Dates: end: 20210707
  5. LOMOTIL [Concomitant]
     Active Substance: ATROPINE SULFATE\DIPHENOXYLATE HYDROCHLORIDE
  6. ZOFRAN [Concomitant]
     Active Substance: ONDANSETRON HYDROCHLORIDE
  7. KEPPRA [Concomitant]
     Active Substance: LEVETIRACETAM
  8. POTASSIUM [Concomitant]
     Active Substance: POTASSIUM
  9. BIOTIN [Concomitant]
     Active Substance: BIOTIN
  10. CCNU [Concomitant]
     Active Substance: LOMUSTINE
  11. DECADRON [Concomitant]
     Active Substance: DEXAMETHASONE
  12. IMODIUM [Concomitant]
     Active Substance: LOPERAMIDE HYDROCHLORIDE
  13. VITAMIN D3 [Concomitant]
     Active Substance: CHOLECALCIFEROL
  14. VITAMIN C [Concomitant]
     Active Substance: ASCORBIC ACID
  15. NORVASC [Concomitant]
     Active Substance: AMLODIPINE BESYLATE
  16. ZINC. [Concomitant]
     Active Substance: ZINC
  17. TURMERIC                           /01079602/ [Concomitant]
     Active Substance: HERBALS\TURMERIC

REACTIONS (2)
  - Off label use [Recovered/Resolved]
  - Drug ineffective for unapproved indication [Unknown]
